FAERS Safety Report 16423674 (Version 1)
Quarter: 2019Q2

REPORT INFORMATION
  Report Type: Spontaneous
  Country: GB (occurrence: GB)
  Receive Date: 20190613
  Receipt Date: 20190613
  Transmission Date: 20190711
  Serious: Yes (Other)
  Sender: FDA-Public Use
  Company Number: GB-TEVA-2019-GB-1061616

PATIENT
  Age: 73 Year
  Sex: Female

DRUGS (1)
  1. AMOXICILLIN. [Suspect]
     Active Substance: AMOXICILLIN
     Route: 048

REACTIONS (5)
  - Dyspnoea [Unknown]
  - Oxygen saturation decreased [Unknown]
  - Rash [Unknown]
  - Respiratory rate increased [Unknown]
  - Documented hypersensitivity to administered product [Unknown]
